FAERS Safety Report 8195445-0 (Version None)
Quarter: 2012Q1

REPORT INFORMATION
  Report Type: 
  Country: None (occurrence: None)
  Receive Date: 20120308
  Receipt Date: 20120223
  Transmission Date: 20120608
  Serious: Yes (Other)
  Sender: FDA-Public Use
  Company Number: PHHY2010US41230

PATIENT
  Sex: Female

DRUGS (24)
  1. PRAVACHOL [Concomitant]
  2. ZOFRAN [Concomitant]
     Dosage: UNK
  3. ACYCLOVIR [Concomitant]
  4. CLARITIN [Concomitant]
  5. VITAMIN D [Concomitant]
  6. GLEEVEC [Suspect]
     Dosage: UNK
     Dates: start: 20090201
  7. ASPIRIN [Concomitant]
     Dosage: UNK
  8. PRAVASTATIN [Concomitant]
     Indication: BLOOD CHOLESTEROL
  9. SINGULAIR [Concomitant]
     Dosage: UNK
  10. PRILOSEC [Concomitant]
  11. METOPROLOL SUCCINATE [Concomitant]
     Dosage: UNK
  12. THYROXIN [Concomitant]
     Dosage: UNK
  13. VITAMIN D [Concomitant]
     Dosage: UNK
  14. ALBUTEROL INHALER [Concomitant]
  15. PLAVIX [Concomitant]
     Dosage: UNK
  16. FOLIC ACID [Concomitant]
  17. LOSARTAN POTASSIUM [Concomitant]
     Indication: BLOOD PRESSURE
  18. MULTI-VITAMINS [Concomitant]
  19. ALBUTEROL [Concomitant]
  20. COZAAR [Concomitant]
  21. VITAMIN TAB [Concomitant]
  22. FLONASE [Concomitant]
  23. QVAR 40 [Concomitant]
  24. MAGNESIUM [Concomitant]

REACTIONS (5)
  - DISEASE RECURRENCE [None]
  - DIARRHOEA [None]
  - EYE SWELLING [None]
  - NAUSEA [None]
  - DRUG RESISTANCE [None]
